FAERS Safety Report 9507329 (Version 1)
Quarter: 2013Q1

REPORT INFORMATION
  Report Type: Spontaneous
  Country: US (occurrence: None)
  Receive Date: 20130305
  Receipt Date: 20130305
  Transmission Date: 20140127
  Serious: Yes (Other)
  Sender: FDA-Public Use
  Company Number: 163-21880-12050036

PATIENT
  Age: 85 Year
  Sex: Male
  Weight: 81.65 kg

DRUGS (4)
  1. REVLIMID (LENALIDOMIDE) (25 MILLIGRAM, CAPSULES) [Suspect]
     Indication: PLASMA CELL MYELOMA
     Dosage: 25 MG, D-1 TO D-21, PO
     Route: 048
     Dates: start: 201112, end: 20120501
  2. LEVENOX (HEPARIN-FRACTIN, SODIUM SALT) (UNKNOWN) [Concomitant]
  3. DECADRON [Concomitant]
  4. ZOMETA (ZOLEDRONIC ACID) (UNKNOWN) [Concomitant]

REACTIONS (1)
  - Deep vein thrombosis [None]
